FAERS Safety Report 8907432 (Version 1)
Quarter: 2012Q4

REPORT INFORMATION
  Report Type: 
  Country: DE (occurrence: DE)
  Receive Date: 20121114
  Receipt Date: 20121114
  Transmission Date: 20130627
  Serious: Yes (Hospitalization)
  Sender: FDA-Public Use
  Company Number: DE-ASTRAZENECA-2012SE84608

PATIENT
  Age: 45 Year
  Sex: Female

DRUGS (15)
  1. SEROQUEL [Suspect]
     Dosage: up to 200 mg daily
     Route: 048
     Dates: start: 20120503, end: 20120508
  2. SEROQUEL [Interacting]
     Route: 048
     Dates: start: 201206
  3. STANGYL [Interacting]
     Route: 048
  4. TREVILOR [Interacting]
     Route: 048
     Dates: start: 20120301, end: 20120413
  5. TREVILOR [Interacting]
     Route: 048
     Dates: start: 20120413
  6. LYRICA [Interacting]
     Route: 048
  7. DOMINAL [Interacting]
     Route: 048
     Dates: end: 20120408
  8. DOMINAL [Interacting]
     Route: 048
     Dates: start: 20120409
  9. TRUXAL [Interacting]
     Dosage: up to 400 mg daily
     Route: 048
     Dates: start: 20120425, end: 20120508
  10. QUILONUM RETARD [Concomitant]
     Route: 048
  11. METFORMIN [Concomitant]
     Route: 048
  12. EUTHYROX [Concomitant]
     Route: 048
  13. FLUANXOL [Concomitant]
     Route: 030
     Dates: end: 20120424
  14. LEVEMIR [Concomitant]
     Route: 048
  15. MOVICOL [Concomitant]
     Route: 048
     Dates: start: 20120507

REACTIONS (4)
  - Drug interaction [Unknown]
  - Alanine aminotransferase increased [Recovering/Resolving]
  - Aspartate aminotransferase increased [Recovering/Resolving]
  - Gamma-glutamyltransferase increased [Recovering/Resolving]
